FAERS Safety Report 5253415-6 (Version None)
Quarter: 2007Q1

REPORT INFORMATION
  Report Type: 
  Country: None (occurrence: None)
  Receive Date: 20061201
  Receipt Date: 20060825
  Transmission Date: 20070707
  Serious: No
  Sender: FDA-Public Use
  Company Number: 2006PV020183

PATIENT
  Age: 56 Year
  Sex: Male
  Weight: 108.8633 kg

DRUGS (3)
  1. BYETTA [Suspect]
  2. HUMULIN N [Concomitant]
  3. AVANDIA [Concomitant]

REACTIONS (2)
  - BLOOD GLUCOSE INCREASED [None]
  - HEADACHE [None]
